FAERS Safety Report 4957347-X (Version None)
Quarter: 2006Q1

REPORT INFORMATION
  Report Type: 
  Country: None (occurrence: None)
  Receive Date: 20060327
  Receipt Date: 20060323
  Transmission Date: 20060701
  Serious: Yes (Hospitalization)
  Sender: FDA-Public Use
  Company Number: 200610820GDS

PATIENT
  Age: 82 Year
  Sex: Female

DRUGS (2)
  1. BUFFERIN [Suspect]
     Indication: THROMBOSIS PROPHYLAXIS
     Dosage: ORAL
     Route: 048
  2. TICLOPIDINE HCL [Suspect]
     Indication: THROMBOSIS PROPHYLAXIS
     Dosage: ORAL
     Route: 048

REACTIONS (7)
  - ABDOMINAL HAEMATOMA [None]
  - ABDOMINAL INJURY [None]
  - ARTERIAL INJURY [None]
  - BLOOD PRESSURE SYSTOLIC DECREASED [None]
  - FALL [None]
  - PAIN [None]
  - SHOCK HAEMORRHAGIC [None]
